FAERS Safety Report 16522000 (Version 1)
Quarter: 2019Q3

REPORT INFORMATION
  Report Type: Spontaneous
  Country: US (occurrence: US)
  Receive Date: 20190703
  Receipt Date: 20190703
  Transmission Date: 20191004
  Serious: Yes (Other)
  Sender: FDA-Public Use
  Company Number: US-AMGEN-USASP2019104090

PATIENT

DRUGS (10)
  1. CARBOPLATIN. [Concomitant]
     Active Substance: CARBOPLATIN
     Indication: OVARIAN CANCER
     Dosage: AUC 5, CYCLICAL (DAY I OF A 21-DAY CYCLE)
  2. CARBOPLATIN. [Concomitant]
     Active Substance: CARBOPLATIN
     Indication: NON-SMALL CELL LUNG CANCER
  3. CARBOPLATIN. [Concomitant]
     Active Substance: CARBOPLATIN
     Indication: SALIVARY GLAND CANCER
  4. BUPARLISIB [Concomitant]
     Active Substance: BUPARLISIB HYDROCHLORIDE
     Dosage: 50, 80, AND 100 MG, QD
     Route: 048
  5. PACLITAXEL. [Concomitant]
     Active Substance: PACLITAXEL
     Indication: NASOPHARYNGEAL CANCER
  6. CARBOPLATIN. [Concomitant]
     Active Substance: CARBOPLATIN
     Indication: NASOPHARYNGEAL CANCER
  7. PEGFILGRASTIM [Suspect]
     Active Substance: PEGFILGRASTIM
     Indication: PRODUCT USED FOR UNKNOWN INDICATION
     Dosage: UNK UNK, Q3WK
     Route: 065
  8. PACLITAXEL. [Concomitant]
     Active Substance: PACLITAXEL
     Indication: SALIVARY GLAND CANCER
  9. PACLITAXEL. [Concomitant]
     Active Substance: PACLITAXEL
     Indication: OVARIAN CANCER
     Dosage: 175 MILLIGRAM/SQ. METER, CYCLICAL (DAY 1 OF A 21-DAY CYCLE)
  10. PACLITAXEL. [Concomitant]
     Active Substance: PACLITAXEL
     Indication: NON-SMALL CELL LUNG CANCER

REACTIONS (36)
  - Thrombocytopenia [Unknown]
  - Cough [Unknown]
  - Hyperglycaemia [Unknown]
  - Hypercholesterolaemia [Unknown]
  - Peripheral sensory neuropathy [Unknown]
  - Anxiety [Unknown]
  - Hypophosphataemia [Unknown]
  - Aspartate aminotransferase increased [Unknown]
  - Alanine aminotransferase increased [Unknown]
  - Dyspnoea [Unknown]
  - Hypoalbuminaemia [Unknown]
  - Decreased appetite [Unknown]
  - Hyponatraemia [Unknown]
  - Myalgia [Unknown]
  - Leukopenia [Unknown]
  - Dizziness [Unknown]
  - Therapeutic product effect incomplete [Unknown]
  - Neutropenia [Unknown]
  - Anaemia [Unknown]
  - Hypertriglyceridaemia [Unknown]
  - Hypertension [Unknown]
  - Fatigue [Unknown]
  - Skin toxicity [Unknown]
  - Hypomagnesaemia [Unknown]
  - Disease progression [Unknown]
  - International normalised ratio increased [Unknown]
  - Depressed mood [Unknown]
  - Nausea [Unknown]
  - Blood alkaline phosphatase increased [Unknown]
  - Alopecia [Unknown]
  - Diarrhoea [Unknown]
  - Lymphopenia [Unknown]
  - Constipation [Unknown]
  - Hypocalcaemia [Unknown]
  - Stomatitis [Unknown]
  - Arthralgia [Unknown]
